FAERS Safety Report 7578726-0 (Version None)
Quarter: 2011Q2

REPORT INFORMATION
  Report Type: 
  Country: None (occurrence: None)
  Receive Date: 20110628
  Receipt Date: 20110620
  Transmission Date: 20111010
  Serious: Yes (Hospitalization)
  Sender: FDA-Public Use
  Company Number: BR-ELI_LILLY_AND_COMPANY-BR201106006015

PATIENT
  Sex: Male

DRUGS (1)
  1. HUMULIN N [Suspect]
     Dosage: UNK
     Route: 065

REACTIONS (2)
  - HYPERGLYCAEMIA [None]
  - DRUG INEFFECTIVE [None]
